FAERS Safety Report 24206396 (Version 1)
Quarter: 2024Q3

REPORT INFORMATION
  Report Type: Spontaneous
  Country: RU (occurrence: None)
  Receive Date: 20240813
  Receipt Date: 20240813
  Transmission Date: 20241016
  Serious: Yes (Hospitalization, Other)
  Sender: ASTRAZENECA
  Company Number: 2024A179866

PATIENT
  Sex: Female

DRUGS (1)
  1. QUETIAPINE [Suspect]
     Active Substance: QUETIAPINE
     Indication: Personality disorder
     Route: 048

REACTIONS (7)
  - Neurodegenerative disorder [Unknown]
  - Head titubation [Unknown]
  - Back pain [Unknown]
  - Urinary retention [Unknown]
  - Confusional state [Unknown]
  - Psychotic symptom [Unknown]
  - Off label use [Unknown]
